APPROVED DRUG PRODUCT: IBUPROFEN
Active Ingredient: IBUPROFEN
Strength: 200MG
Dosage Form/Route: TABLET;ORAL
Application: A076460 | Product #001
Applicant: AVEMA PHARMA SOLUTIONS
Approved: Nov 26, 2003 | RLD: No | RS: No | Type: OTC